FAERS Safety Report 14000650 (Version 3)
Quarter: 2017Q4

REPORT INFORMATION
  Report Type: Report from Study
  Country: IT (occurrence: IT)
  Receive Date: 20170922
  Receipt Date: 20171023
  Transmission Date: 20180321
  Serious: Yes (Other)
  Sender: FDA-Public Use
  Company Number: IT-TEVA-801728ACC

PATIENT
  Age: 52 Year
  Sex: Male

DRUGS (3)
  1. DACLATASVIR. [Suspect]
     Active Substance: DACLATASVIR
     Indication: CHRONIC HEPATITIS C
     Dosage: FOR 12 WEEKS
     Route: 065
  2. RIBAVIRIN. [Suspect]
     Active Substance: RIBAVIRIN
     Indication: CHRONIC HEPATITIS C
     Dosage: FOR 24 WEEKS
     Route: 065
  3. SOFOSBUVIR [Suspect]
     Active Substance: SOFOSBUVIR
     Indication: CHRONIC HEPATITIS C
     Dosage: FOR 12 WEEKS
     Route: 065

REACTIONS (6)
  - Virologic failure [Unknown]
  - Hepatitis C [Unknown]
  - Drug ineffective [Unknown]
  - Genotype drug resistance test [Unknown]
  - Treatment failure [Unknown]
  - Pathogen resistance [Unknown]
